FAERS Safety Report 14766896 (Version 11)
Quarter: 2023Q1

REPORT INFORMATION
  Report Type: Other
  Country: CO (occurrence: CO)
  Receive Date: 20180417
  Receipt Date: 20230321
  Transmission Date: 20230418
  Serious: Yes (Other)
  Sender: FDA-Public Use
  Company Number: CO-002147023-PHHY2018CO062517

PATIENT
  Age: 40 Year
  Sex: Female
  Weight: 69 kg

DRUGS (6)
  1. XOLAIR [Suspect]
     Active Substance: OMALIZUMAB
     Indication: Chronic spontaneous urticaria
     Route: 058
     Dates: start: 20170920
  2. XOLAIR [Suspect]
     Active Substance: OMALIZUMAB
     Indication: Idiopathic urticaria
     Dosage: 300 MG, QMO
     Route: 058
  3. XOLAIR [Suspect]
     Active Substance: OMALIZUMAB
     Route: 058
  4. XOLAIR [Suspect]
     Active Substance: OMALIZUMAB
     Route: 058
     Dates: start: 20230220
  5. LOSARTAN [Suspect]
     Active Substance: LOSARTAN
     Indication: Hypertension
     Dosage: 50 MG, Q12H (5 YEARS AGO APPROXIMATELY)
     Route: 048
  6. BILASTINE [Concomitant]
     Active Substance: BILASTINE

REACTIONS (15)
  - Heavy menstrual bleeding [Unknown]
  - Menstruation irregular [Unknown]
  - Uterine polyp [Unknown]
  - Drug ineffective [Unknown]
  - Malaise [Unknown]
  - Dysuria [Unknown]
  - Haemorrhage urinary tract [Unknown]
  - Off label use [Unknown]
  - Pain [Unknown]
  - Pruritus [Not Recovered/Not Resolved]
  - Hypersensitivity [Not Recovered/Not Resolved]
  - Urticaria [Unknown]
  - Migraine [Unknown]
  - Benign ear neoplasm [Unknown]
  - Skin odour abnormal [Unknown]

NARRATIVE: CASE EVENT DATE: 20180404
